FAERS Safety Report 4494029-5 (Version None)
Quarter: 2004Q4

REPORT INFORMATION
  Report Type: 
  Country: None (occurrence: None)
  Receive Date: 20041105
  Receipt Date: 20041028
  Transmission Date: 20050328
  Serious: Yes (Other)
  Sender: FDA-Public Use
  Company Number: 200418359US

PATIENT
  Sex: Female

DRUGS (4)
  1. LASIX [Suspect]
     Dosage: DOSE: UNK
  2. ALTACE [Suspect]
     Dosage: DOSE: UNK
  3. ALLOPURINOL [Suspect]
  4. CARBOPLATIN [Suspect]

REACTIONS (3)
  - HYPOVOLAEMIA [None]
  - MARKEDLY REDUCED DIETARY INTAKE [None]
  - RENAL FAILURE ACUTE [None]
